APPROVED DRUG PRODUCT: DOXYCYCLINE
Active Ingredient: DOXYCYCLINE
Strength: EQ 150MG BASE
Dosage Form/Route: CAPSULE;ORAL
Application: A202778 | Product #001
Applicant: STRIDES PHARMA GLOBAL PTE LTD
Approved: Jun 8, 2012 | RLD: No | RS: No | Type: DISCN